FAERS Safety Report 8665071 (Version 3)
Quarter: 2012Q4

REPORT INFORMATION
  Report Type: 
  Country: GB (occurrence: GB)
  Receive Date: 20120716
  Receipt Date: 20121112
  Transmission Date: 20130627
  Serious: Yes (Death, Other)
  Sender: FDA-Public Use
  Company Number: GB-BIOGENIDEC-2012BI024838

PATIENT
  Age: 43 Year
  Sex: Female

DRUGS (1)
  1. TYSABRI [Suspect]
     Indication: MULTIPLE SCLEROSIS
     Dates: start: 2004, end: 201101

REACTIONS (2)
  - Breast cancer [Fatal]
  - Metastases to meninges [Unknown]
